FAERS Safety Report 23820087 (Version 1)
Quarter: 2024Q2

REPORT INFORMATION
  Report Type: Other
  Country: US (occurrence: None)
  Receive Date: 20240506
  Receipt Date: 20240506
  Transmission Date: 20240716
  Serious: Yes (Other)
  Sender: FDA-Public Use
  Company Number: US-ROCHE-3556281

PATIENT

DRUGS (1)
  1. BEVACIZUMAB [Suspect]
     Active Substance: BEVACIZUMAB
     Indication: Respiratory papilloma
     Route: 042

REACTIONS (4)
  - Acute kidney injury [Recovered/Resolved]
  - Proteinuria [Unknown]
  - Epistaxis [Unknown]
  - Upper respiratory tract infection [Unknown]
